FAERS Safety Report 8217217-0 (Version None)
Quarter: 2012Q1

REPORT INFORMATION
  Report Type: 
  Country: None (occurrence: None)
  Receive Date: 20120319
  Receipt Date: 20120314
  Transmission Date: 20120608
  Serious: No
  Sender: FDA-Public Use
  Company Number: US-PFIZER INC-2012067789

PATIENT
  Sex: Female
  Weight: 55.78 kg

DRUGS (2)
  1. ALDACTONE [Suspect]
     Indication: ACNE
     Dosage: 50 MG, 2X/DAY
     Route: 048
     Dates: start: 20120101, end: 20120310
  2. ESTROSTEP [Concomitant]
     Dosage: UNK

REACTIONS (2)
  - HYPOAESTHESIA [None]
  - PARAESTHESIA [None]
